FAERS Safety Report 18717060 (Version 1)
Quarter: 2021Q1

REPORT INFORMATION
  Report Type: Spontaneous
  Country: IT (occurrence: IT)
  Receive Date: 20210108
  Receipt Date: 20210108
  Transmission Date: 20210419
  Serious: Yes (Hospitalization)
  Sender: FDA-Public Use
  Company Number: IT-MYLANLABS-2020M1085351

PATIENT
  Age: 80 Year
  Sex: Female

DRUGS (6)
  1. CIPROFLOXACIN. [Suspect]
     Active Substance: CIPROFLOXACIN
     Indication: ESCHERICHIA SEPSIS
     Dosage: UNK
     Route: 048
  2. AMPICILLIN/SULBACTAM [Suspect]
     Active Substance: AMPICILLIN SODIUM\SULBACTAM SODIUM
     Indication: ESCHERICHIA SEPSIS
  3. CEFTOLOZANE;TAZOBACTAM [Suspect]
     Active Substance: CEFTOLOZANE SULFATE\TAZOBACTAM SODIUM
     Indication: ESCHERICHIA INFECTION
  4. CIPROFLOXACIN. [Suspect]
     Active Substance: CIPROFLOXACIN
     Indication: ESCHERICHIA INFECTION
     Dosage: UNK
     Route: 065
  5. AMPICILLIN/SULBACTAM [Suspect]
     Active Substance: AMPICILLIN SODIUM\SULBACTAM SODIUM
     Indication: ESCHERICHIA INFECTION
     Dosage: UNK
     Route: 065
  6. CEFTOLOZANE;TAZOBACTAM [Suspect]
     Active Substance: CEFTOLOZANE SULFATE\TAZOBACTAM SODIUM
     Indication: ESCHERICHIA SEPSIS
     Dosage: UNK
     Route: 065

REACTIONS (3)
  - Diarrhoea [Recovered/Resolved]
  - Clostridium difficile infection [Recovered/Resolved]
  - Pyrexia [Unknown]
